FAERS Safety Report 10011252 (Version 1)
Quarter: 2014Q1

REPORT INFORMATION
  Report Type: Report from Study
  Country: MX (occurrence: MX)
  Receive Date: 20140314
  Receipt Date: 20140314
  Transmission Date: 20141002
  Serious: Yes (Other)
  Sender: FDA-Public Use
  Company Number: MX-ROCHE-1365832

PATIENT
  Age: 46 Year
  Sex: Female
  Weight: 46 kg

DRUGS (6)
  1. HERCEPTIN [Suspect]
     Indication: BREAST CANCER
     Route: 065
  2. PACLITAXEL [Concomitant]
     Indication: BREAST CANCER
  3. DOXORUBICIN [Concomitant]
     Indication: BREAST CANCER
  4. CYCLOPHOSPHAMID [Concomitant]
     Indication: BREAST CANCER
  5. GEMCITABINE [Concomitant]
     Indication: BREAST CANCER
  6. ZOLEDRONIC ACID [Concomitant]
     Indication: BREAST CANCER

REACTIONS (1)
  - Disease progression [Unknown]
